FAERS Safety Report 21275424 (Version 1)
Quarter: 2022Q3

REPORT INFORMATION
  Report Type: Spontaneous
  Country: US (occurrence: None)
  Receive Date: 20220831
  Receipt Date: 20220831
  Transmission Date: 20221027
  Serious: Yes (Hospitalization)
  Sender: FDA-Public Use
  Company Number: US-FARMAPROD-202208-1611

PATIENT
  Sex: Female

DRUGS (11)
  1. OXERVATE [Suspect]
     Active Substance: CENEGERMIN-BKBJ
     Indication: Neurotrophic keratopathy
     Route: 047
     Dates: start: 20220714
  2. OLANZAPINE [Concomitant]
     Active Substance: OLANZAPINE
  3. ZOLOFT [Concomitant]
     Active Substance: SERTRALINE HYDROCHLORIDE
  4. METOPROLOL SUCCINATE [Concomitant]
     Active Substance: METOPROLOL SUCCINATE
  5. FISH OIL [Concomitant]
     Active Substance: FISH OIL
  6. VITAMIN C [Concomitant]
     Active Substance: ASCORBIC ACID
  7. VITAMIN D-400 [Concomitant]
  8. AUTOLOGOUS EYE DROPS [Concomitant]
  9. FLAREX [Concomitant]
     Active Substance: FLUOROMETHOLONE ACETATE
  10. RESTASIS [Concomitant]
     Active Substance: CYCLOSPORINE
  11. REFRESH CELLUVISC [Concomitant]
     Active Substance: CARBOXYMETHYLCELLULOSE SODIUM
     Dosage: DROPER GEL

REACTIONS (2)
  - Depression [Unknown]
  - Eye pain [Unknown]
